FAERS Safety Report 5356631-8 (Version None)
Quarter: 2007Q2

REPORT INFORMATION
  Report Type: 
  Country: None (occurrence: None)
  Receive Date: 20070614
  Receipt Date: 20070608
  Transmission Date: 20071010
  Serious: Yes (Death, Other)
  Sender: FDA-Public Use
  Company Number: JP-BAYER-200710381BYL

PATIENT
  Age: 75 Year
  Sex: Female
  Weight: 71 kg

DRUGS (4)
  1. ASPIRIN [Suspect]
     Indication: TRANSIENT ISCHAEMIC ATTACK
     Dosage: TOTAL DAILY DOSE: 100 MG  UNIT DOSE: 100 MG
     Route: 048
     Dates: start: 20061001
  2. PLAVIX [Suspect]
     Indication: TRANSIENT ISCHAEMIC ATTACK
     Dosage: TOTAL DAILY DOSE: 75 MG  UNIT DOSE: 75 MG
     Route: 048
     Dates: start: 20070201
  3. CINALONG [Suspect]
     Indication: HYPERTENSION
     Dosage: TOTAL DAILY DOSE: 5 MG  UNIT DOSE: 5 MG
     Route: 048
     Dates: start: 20061001
  4. ARICEPT [Suspect]
     Indication: DEMENTIA ALZHEIMER'S TYPE
     Dosage: TOTAL DAILY DOSE: 3 MG  UNIT DOSE: 3 MG
     Route: 048
     Dates: start: 20070501

REACTIONS (2)
  - PUTAMEN HAEMORRHAGE [None]
  - TRANSIENT ISCHAEMIC ATTACK [None]
